FAERS Safety Report 6791075-3 (Version None)
Quarter: 2010Q2

REPORT INFORMATION
  Report Type: 
  Country: None (occurrence: None)
  Receive Date: 20100624
  Receipt Date: 20100611
  Transmission Date: 20101027
  Serious: Yes (Other)
  Sender: FDA-Public Use
  Company Number: AU-BRISTOL-MYERS SQUIBB COMPANY-15154529

PATIENT
  Age: 42 Year
  Sex: Male

DRUGS (3)
  1. BARACLUDE [Suspect]
     Dates: start: 20060801
  2. EFAVIRENZ [Suspect]
     Indication: ANTIRETROVIRAL THERAPY
  3. TRUVADA [Suspect]
     Indication: ANTIRETROVIRAL THERAPY

REACTIONS (2)
  - DRUG RESISTANCE [None]
  - HEPATITIS B DNA INCREASED [None]
